FAERS Safety Report 20136932 (Version 1)
Quarter: 2021Q4

REPORT INFORMATION
  Report Type: Spontaneous
  Country: US (occurrence: US)
  Receive Date: 20211201
  Receipt Date: 20211201
  Transmission Date: 20220303
  Serious: No
  Sender: FDA-Public Use
  Company Number: US-BRISTOL-MYERS SQUIBB COMPANY-BMS-2021-124206

PATIENT
  Age: 55 Year
  Sex: Female

DRUGS (1)
  1. KENALOG-40 [Suspect]
     Active Substance: TRIAMCINOLONE ACETONIDE
     Indication: Neck pain
     Dosage: 60 MILLIGRAM, ONCE
     Route: 065
     Dates: start: 20211001

REACTIONS (1)
  - Intentional product use issue [Unknown]
